FAERS Safety Report 23582076 (Version 1)
Quarter: 2024Q1

REPORT INFORMATION
  Report Type: Spontaneous
  Country: US (occurrence: US)
  Receive Date: 20240229
  Receipt Date: 20240229
  Transmission Date: 20240410
  Serious: No
  Sender: FDA-Public Use
  Company Number: US-SA-SAC20240222000381

PATIENT
  Age: 30 Year
  Sex: Female

DRUGS (1)
  1. DUPIXENT [Suspect]
     Active Substance: DUPILUMAB
     Indication: Eczema
     Dosage: 600 MG, 1X
     Route: 058
     Dates: start: 20240219, end: 20240219

REACTIONS (4)
  - Eczema [Unknown]
  - Rash pruritic [Unknown]
  - Exfoliative rash [Unknown]
  - Dry skin [Unknown]

NARRATIVE: CASE EVENT DATE: 20240201
